FAERS Safety Report 18656154 (Version 1)
Quarter: 2020Q4

REPORT INFORMATION
  Report Type: Report from Study
  Country: FR (occurrence: FR)
  Receive Date: 20201223
  Receipt Date: 20201223
  Transmission Date: 20210114
  Serious: Yes (Hospitalization, Other)
  Sender: FDA-Public Use
  Company Number: FR-GILEAD-2020-0487579

PATIENT
  Sex: Female
  Weight: 98 kg

DRUGS (13)
  1. LEVOTHYROXINE SODIQUE [Concomitant]
     Active Substance: LEVOTHYROXINE SODIUM
     Dosage: UNK
     Route: 048
     Dates: start: 20200331
  2. IRBESARTAN. [Concomitant]
     Active Substance: IRBESARTAN
     Route: 048
  3. MOXONIDINE [Concomitant]
     Active Substance: MOXONIDINE
     Route: 048
  4. ATENOLOL. [Concomitant]
     Active Substance: ATENOLOL
     Route: 048
  5. LORAZEPAM. [Concomitant]
     Active Substance: LORAZEPAM
     Dosage: UNK
     Route: 048
     Dates: end: 20200427
  6. REMDESIVIR. [Suspect]
     Active Substance: REMDESIVIR
     Indication: COVID-19
     Dosage: 100 MG
     Route: 042
     Dates: start: 20200330, end: 20200408
  7. PANTOPRAZOLE [Concomitant]
     Active Substance: PANTOPRAZOLE
     Dosage: UNK
     Route: 042
     Dates: start: 20200331
  8. HYDROCHLOROTHIAZIDE. [Concomitant]
     Active Substance: HYDROCHLOROTHIAZIDE
     Route: 048
  9. ROSUVASTATINE [ROSUVASTATIN] [Concomitant]
     Active Substance: ROSUVASTATIN
     Route: 048
  10. LERCANIDIPINE [Concomitant]
     Active Substance: LERCANIDIPINE
     Route: 048
  11. FLECAINE [Concomitant]
     Active Substance: FLECAINIDE
     Route: 048
  12. INSULINE ASPARTATE [Concomitant]
     Active Substance: INSULIN ASPART
     Dosage: UNK
     Route: 042
     Dates: start: 20200420
  13. PPI MAX [Concomitant]
     Route: 048

REACTIONS (2)
  - Acute respiratory distress syndrome [Recovered/Resolved]
  - Septic shock [Recovered/Resolved]

NARRATIVE: CASE EVENT DATE: 20200330
